FAERS Safety Report 6526042-8 (Version None)
Quarter: 2010Q1

REPORT INFORMATION
  Report Type: 
  Country: None (occurrence: None)
  Receive Date: 20100104
  Receipt Date: 20091222
  Transmission Date: 20100710
  Serious: Yes (Hospitalization)
  Sender: FDA-Public Use
  Company Number: US-JNJFOC-20091206954

PATIENT
  Sex: Male

DRUGS (6)
  1. REMICADE [Suspect]
     Indication: COLITIS ULCERATIVE
     Route: 042
  2. DASATINIB [Suspect]
     Indication: PROSTATE CANCER
     Route: 048
  3. PLACEBO [Suspect]
     Indication: PROSTATE CANCER
     Route: 048
  4. DOCETAXEL [Suspect]
     Indication: PROSTATE CANCER
     Route: 042
  5. PREDNISONE [Suspect]
     Indication: PROSTATE CANCER
     Route: 048
  6. DEXAMETHASONE [Suspect]
     Indication: PREMEDICATION
     Route: 048

REACTIONS (2)
  - NEUTROPHIL COUNT DECREASED [None]
  - OESOPHAGEAL CANDIDIASIS [None]
